FAERS Safety Report 7380079-8 (Version None)
Quarter: 2011Q1

REPORT INFORMATION
  Report Type: 
  Country: None (occurrence: None)
  Receive Date: 20110324
  Receipt Date: 20110324
  Transmission Date: 20110831
  Serious: Yes (Hospitalization, Disabling)
  Sender: FDA-Public Use
  Company Number: None

PATIENT
  Age: 45 Year
  Sex: Female
  Weight: 53.978 kg

DRUGS (1)
  1. POTASSIUM IODIDE [Suspect]
     Dates: start: 20110319, end: 20110321

REACTIONS (9)
  - STOMATITIS [None]
  - HOT FLUSH [None]
  - DIZZINESS [None]
  - SKIN IRRITATION [None]
  - ANXIETY [None]
  - IMPAIRED DRIVING ABILITY [None]
  - HYPERHIDROSIS [None]
  - ABDOMINAL PAIN [None]
  - CONFUSIONAL STATE [None]
